FAERS Safety Report 10284462 (Version 1)
Quarter: 2014Q3

REPORT INFORMATION
  Report Type: Spontaneous
  Country: CN (occurrence: CN)
  Receive Date: 20140708
  Receipt Date: 20140708
  Transmission Date: 20150326
  Serious: Yes (Hospitalization)
  Sender: FDA-Public Use
  Company Number: CN-SA-2014SA086671

PATIENT
  Age: 58 Year
  Sex: Female

DRUGS (5)
  1. BEVACIZUMAB [Suspect]
     Active Substance: BEVACIZUMAB
     Indication: COLON CANCER
     Dosage: ON DAY 1
     Route: 042
     Dates: start: 2011, end: 20110521
  2. OXALIPLATIN. [Suspect]
     Active Substance: OXALIPLATIN
     Indication: COLON CANCER
     Dosage: ON DAY 1
     Route: 042
     Dates: start: 2011, end: 20110521
  3. FLUOROURACIL. [Suspect]
     Active Substance: FLUOROURACIL
     Indication: COLON CANCER
     Dosage: 0.68 IV BOLUS ON DAY 1
     Route: 042
     Dates: start: 2011
  4. FLUOROURACIL. [Suspect]
     Active Substance: FLUOROURACIL
     Indication: COLON CANCER
     Dosage: 4.0 CONTINUOUS IV INFUSION 46 HRS
     Route: 042
     Dates: start: 2011, end: 20110521
  5. LEUCOVORIN [Suspect]
     Active Substance: LEUCOVORIN
     Indication: COLON CANCER
     Dosage: 0.68 IV BOLUS
     Route: 042
     Dates: start: 2011, end: 20110521

REACTIONS (8)
  - Headache [Recovering/Resolving]
  - Coma [Recovered/Resolved]
  - Dizziness [Recovering/Resolving]
  - Blood pressure increased [Recovered/Resolved]
  - Muscular weakness [Recovered/Resolved]
  - Posterior reversible encephalopathy syndrome [Recovering/Resolving]
  - Restlessness [Recovering/Resolving]
  - Cerebral arteriosclerosis [Recovering/Resolving]

NARRATIVE: CASE EVENT DATE: 20110604
